FAERS Safety Report 24647360 (Version 2)
Quarter: 2024Q4

REPORT INFORMATION
  Report Type: Spontaneous
  Country: CA (occurrence: CA)
  Receive Date: 20241121
  Receipt Date: 20241230
  Transmission Date: 20250114
  Serious: No
  Sender: PFIZER
  Company Number: CA-PFIZER INC-202400296612

PATIENT

DRUGS (1)
  1. FRAGMIN [Suspect]
     Active Substance: DALTEPARIN SODIUM
     Dosage: (FRAGMIN 12500 I.U./0.5 ML INJECTION)

REACTIONS (1)
  - Device operational issue [Unknown]

NARRATIVE: CASE EVENT DATE: 20241105
